FAERS Safety Report 24311607 (Version 1)
Quarter: 2024Q3

REPORT INFORMATION
  Report Type: Spontaneous
  Country: IN (occurrence: IN)
  Receive Date: 20240912
  Receipt Date: 20240912
  Transmission Date: 20241016
  Serious: Yes (Hospitalization, Other)
  Sender: AZURITY PHARMACEUTICALS
  Company Number: IN-AZURITY PHARMACEUTICALS, INC.-AZR202408-000545

PATIENT
  Age: 62 Year
  Sex: Female

DRUGS (1)
  1. LEVOTHYROXINE SODIUM [Suspect]
     Active Substance: LEVOTHYROXINE SODIUM
     Indication: Hypothyroidism
     Dosage: 150 MICROGRAM, QD
     Route: 065

REACTIONS (5)
  - Atrial fibrillation [Recovered/Resolved]
  - Hyperglycaemia [Recovered/Resolved]
  - Hemiplegia [Recovering/Resolving]
  - Aphasia [Recovering/Resolving]
  - Overdose [Unknown]
